FAERS Safety Report 23323640 (Version 1)
Quarter: 2023Q4

REPORT INFORMATION
  Report Type: Spontaneous
  Country: US (occurrence: None)
  Receive Date: 20231220
  Receipt Date: 20231220
  Transmission Date: 20240110
  Serious: No
  Sender: FDA-Public Use
  Company Number: US-ROCHE-3434735

PATIENT
  Sex: Male
  Weight: 67.192 kg

DRUGS (1)
  1. RITUXAN [Suspect]
     Active Substance: RITUXIMAB
     Indication: Follicular lymphoma
     Route: 041

REACTIONS (2)
  - Intercepted product preparation error [Unknown]
  - No adverse event [Unknown]

NARRATIVE: CASE EVENT DATE: 20231005
